FAERS Safety Report 9244982 (Version 2)
Quarter: 2013Q2

REPORT INFORMATION
  Report Type: Spontaneous
  Country: DE (occurrence: DE)
  Receive Date: 20130422
  Receipt Date: 20130430
  Transmission Date: 20140414
  Serious: Yes (Other)
  Sender: FDA-Public Use
  Company Number: DE-JNJFOC-20130406827

PATIENT
  Sex: Male

DRUGS (1)
  1. ZYTIGA [Suspect]
     Indication: PRODUCT USED FOR UNKNOWN INDICATION
     Route: 048
     Dates: start: 20110921

REACTIONS (7)
  - Blood alkaline phosphatase increased [Unknown]
  - Prostatic specific antigen increased [Unknown]
  - Blood testosterone decreased [Unknown]
  - Bone pain [Unknown]
  - Pelvic pain [Unknown]
  - Muscular weakness [Unknown]
  - Hypoaesthesia [Unknown]
